FAERS Safety Report 8153622-9 (Version None)
Quarter: 2012Q1

REPORT INFORMATION
  Report Type: 
  Country: None (occurrence: None)
  Receive Date: 20120221
  Receipt Date: 20111128
  Transmission Date: 20120608
  Serious: Yes (Other)
  Sender: FDA-Public Use
  Company Number: CA-JNJFOC-20120109240

PATIENT
  Sex: Female
  Weight: 75 kg

DRUGS (3)
  1. REMICADE [Suspect]
     Indication: COLITIS ULCERATIVE
     Route: 042
     Dates: start: 20091113
  2. CITALOPRAM HYDROBROMIDE [Concomitant]
     Route: 065
  3. ELAVIL [Concomitant]
     Route: 065

REACTIONS (1)
  - NEPHROLITHIASIS [None]
